FAERS Safety Report 18782349 (Version 1)
Quarter: 2021Q1

REPORT INFORMATION
  Report Type: Spontaneous
  Country: US (occurrence: US)
  Receive Date: 20210125
  Receipt Date: 20210125
  Transmission Date: 20210419
  Serious: No
  Sender: FDA-Public Use
  Company Number: US-COVIS PHARMA B.V.-2020COV00216

PATIENT
  Age: 72 Year
  Sex: Female
  Weight: 43.08 kg

DRUGS (10)
  1. TIZANIDINE. [Suspect]
     Active Substance: TIZANIDINE
     Indication: MUSCLE SPASTICITY
     Dosage: ^YEARS AGO^
     Route: 048
  2. D?MANNOSE [Concomitant]
  3. UQORA [Concomitant]
  4. PEPCID [Concomitant]
     Active Substance: FAMOTIDINE
  5. TIZANIDINE. [Suspect]
     Active Substance: TIZANIDINE
     Indication: MULTIPLE SCLEROSIS
     Dosage: 2 MG, 1X/DAY
     Route: 048
     Dates: start: 20200327
  6. VITAMIN E [Concomitant]
     Active Substance: .ALPHA.-TOCOPHEROL
  7. FLAX SEED OIL GELCAPS [Concomitant]
  8. AVONEX [Suspect]
     Active Substance: INTERFERON BETA-1A
     Indication: MULTIPLE SCLEROSIS
     Dosage: UNK, 1X/WEEK
  9. CALCIUM [Concomitant]
     Active Substance: CALCIUM
  10. ACIDOPHILUS [Concomitant]
     Active Substance: LACTOBACILLUS ACIDOPHILUS

REACTIONS (8)
  - Headache [Recovered/Resolved]
  - Dizziness [Recovered/Resolved]
  - Intentional product misuse [Not Recovered/Not Resolved]
  - Expired product administered [Not Recovered/Not Resolved]
  - Feeling abnormal [Recovered/Resolved]
  - Neuralgia [Recovered/Resolved]
  - Fall [Recovered/Resolved]
  - Intentional dose omission [Not Recovered/Not Resolved]

NARRATIVE: CASE EVENT DATE: 2020
